FAERS Safety Report 7059873-9 (Version None)
Quarter: 2010Q4

REPORT INFORMATION
  Report Type: 
  Country: None (occurrence: None)
  Receive Date: 20101025
  Receipt Date: 20101013
  Transmission Date: 20110411
  Serious: Yes (Hospitalization)
  Sender: FDA-Public Use
  Company Number: PHHY2010US69020

PATIENT
  Sex: Male

DRUGS (1)
  1. MYFORTIC [Suspect]
     Dosage: 180 MG, BID
     Route: 048
     Dates: start: 20100601

REACTIONS (2)
  - BLOOD COUNT ABNORMAL [None]
  - TRANSFUSION [None]
